FAERS Safety Report 14021717 (Version 1)
Quarter: 2017Q3

REPORT INFORMATION
  Report Type: Spontaneous
  Country: US (occurrence: None)
  Receive Date: 20170928
  Receipt Date: 20170928
  Transmission Date: 20171128
  Serious: No
  Sender: FDA-Public Use
  Company Number: None

PATIENT
  Age: 63 Year
  Sex: Female
  Weight: 117.93 kg

DRUGS (5)
  1. LOW DOSE ASPIRIN [Concomitant]
     Active Substance: ASPIRIN
  2. TOPROL XL [Concomitant]
     Active Substance: METOPROLOL SUCCINATE
  3. ROSUVASTATIN TAB [Suspect]
     Active Substance: ROSUVASTATIN
     Dosage: 15 PILLS
     Route: 048
  4. ATORVASTATIN [Suspect]
     Active Substance: ATORVASTATIN
     Route: 048
  5. VITAMIN D [Concomitant]
     Active Substance: CHOLECALCIFEROL

REACTIONS (4)
  - Dry mouth [None]
  - Oral discomfort [None]
  - Rash maculo-papular [None]
  - Product substitution issue [None]

NARRATIVE: CASE EVENT DATE: 201707
